FAERS Safety Report 9135263 (Version 2)
Quarter: 2013Q1

REPORT INFORMATION
  Report Type: Report from Study
  Country: IT (occurrence: IT)
  Receive Date: 20130304
  Receipt Date: 20130307
  Transmission Date: 20140127
  Serious: Yes (Death, Hospitalization, Other)
  Sender: FDA-Public Use
  Company Number: IT-SANOFI-AVENTIS-2013SA019376

PATIENT
  Age: 66 Year
  Sex: Female
  Weight: 66 kg

DRUGS (10)
  1. TAXOTERE [Suspect]
     Indication: NON-SMALL CELL LUNG CANCER STAGE IV
     Dosage: DAY 1 OF 21 DAY CYCLE
     Route: 041
     Dates: start: 20120925, end: 20120925
  2. INVESTIGATIONAL DRUG [Suspect]
     Indication: NON-SMALL CELL LUNG CANCER STAGE IV
     Dosage: DAY 1 OF 21 DAY CYCLE
     Route: 042
     Dates: start: 20120925, end: 20120925
  3. RANITIDINE [Concomitant]
     Indication: PREMEDICATION
  4. SOLDESAM [Concomitant]
     Indication: PREMEDICATION
  5. PLASIL [Concomitant]
     Indication: PREMEDICATION
  6. CHLORPHENAMINE MALEATE [Concomitant]
     Indication: PREMEDICATION
  7. DELTACORTENE [Concomitant]
     Indication: PREMEDICATION
  8. DISSENTEN [Concomitant]
  9. PREDNISONE [Concomitant]
     Indication: ANTIEMETIC SUPPORTIVE CARE
     Dates: start: 20120926, end: 20120928
  10. ONDANSETRON [Concomitant]
     Indication: ANTIEMETIC SUPPORTIVE CARE
     Dates: start: 20120926, end: 20120928

REACTIONS (4)
  - Cardio-respiratory arrest [Fatal]
  - Renal failure [Unknown]
  - Neutropenia [Unknown]
  - Diarrhoea [Unknown]
